FAERS Safety Report 18496722 (Version 3)
Quarter: 2020Q4

REPORT INFORMATION
  Report Type: Report from Study
  Country: CA (occurrence: CA)
  Receive Date: 20201112
  Receipt Date: 20201223
  Transmission Date: 20210114
  Serious: Yes (Life-Threatening, Hospitalization, Other)
  Sender: FDA-Public Use
  Company Number: CA-ELI_LILLY_AND_COMPANY-CA202005007770

PATIENT
  Age: 56 Year
  Sex: Female

DRUGS (2)
  1. TALTZ [Suspect]
     Active Substance: IXEKIZUMAB
     Indication: PRODUCT USED FOR UNKNOWN INDICATION
     Dosage: 80 MG, UNKNOWN
     Route: 058
     Dates: start: 20200406, end: 20200730
  2. COSENTYX [Suspect]
     Active Substance: SECUKINUMAB
     Indication: PRODUCT USED FOR UNKNOWN INDICATION
     Dosage: UNK UNK, UNKNOWN
     Route: 065

REACTIONS (20)
  - Pruritus [Unknown]
  - White blood cell count decreased [Unknown]
  - Eye swelling [Unknown]
  - Candida infection [Unknown]
  - Dyspnoea [Unknown]
  - Rhinorrhoea [Unknown]
  - Headache [Unknown]
  - Sleep apnoea syndrome [Unknown]
  - Oropharyngeal pain [Unknown]
  - Chronic obstructive pulmonary disease [Unknown]
  - Cough [Unknown]
  - Pneumothorax [Unknown]
  - Oropharyngeal discomfort [Unknown]
  - Cystitis [Unknown]
  - Diarrhoea [Unknown]
  - Myalgia [Unknown]
  - Urinary tract disorder [Unknown]
  - Pelvic discomfort [Unknown]
  - Throat tightness [Not Recovered/Not Resolved]
  - Hyperhidrosis [Unknown]

NARRATIVE: CASE EVENT DATE: 20200406
